FAERS Safety Report 9099683 (Version 1)
Quarter: 2013Q1

REPORT INFORMATION
  Report Type: Spontaneous
  Country: BE (occurrence: BE)
  Receive Date: 20130214
  Receipt Date: 20130214
  Transmission Date: 20140127
  Serious: Yes (Hospitalization)
  Sender: FDA-Public Use
  Company Number: BE-ROCHE-1183174

PATIENT
  Age: 43 Year
  Sex: Female

DRUGS (4)
  1. AVASTIN [Suspect]
     Indication: BREAST CANCER
     Route: 065
     Dates: start: 20120607, end: 20121214
  2. TAXOL [Concomitant]
     Indication: BREAST CANCER
  3. CO-DIOVANE [Concomitant]
     Indication: HYPERTENSION
     Dosage: 160/12.5 MG
     Route: 048
  4. SALAGEN [Concomitant]
     Indication: ASTHMA

REACTIONS (4)
  - Pneumonia [Unknown]
  - Pneumonia [Recovered/Resolved]
  - Sepsis [Recovered/Resolved]
  - Renal failure acute [Unknown]
